FAERS Safety Report 12590726 (Version 1)
Quarter: 2016Q3

REPORT INFORMATION
  Report Type: Spontaneous
  Country: US (occurrence: US)
  Receive Date: 20160726
  Receipt Date: 20160726
  Transmission Date: 20161109
  Serious: No
  Sender: FDA-Public Use
  Company Number: PHEH2016US017905

PATIENT
  Sex: Male

DRUGS (1)
  1. COSENTYX [Suspect]
     Active Substance: SECUKINUMAB
     Indication: PRODUCT USED FOR UNKNOWN INDICATION
     Route: 065

REACTIONS (9)
  - Head discomfort [Unknown]
  - Vertigo [Unknown]
  - Malaise [Unknown]
  - Chills [Unknown]
  - Hyperhidrosis [Unknown]
  - Pyrexia [Unknown]
  - Movement disorder [Unknown]
  - Fatigue [Unknown]
  - Myalgia [Unknown]
